FAERS Safety Report 16713936 (Version 2)
Quarter: 2019Q3

REPORT INFORMATION
  Report Type: Spontaneous
  Country: US (occurrence: US)
  Receive Date: 20190819
  Receipt Date: 20190913
  Transmission Date: 20191004
  Serious: Yes (Other)
  Sender: FDA-Public Use
  Company Number: US-MALLINCKRODT-T201905613

PATIENT
  Age: 65 Year
  Sex: Female
  Weight: 57 kg

DRUGS (9)
  1. MIDODRINE [Concomitant]
     Active Substance: MIDODRINE
     Indication: PRODUCT USED FOR UNKNOWN INDICATION
     Dosage: 5 MILLIGRAM, BID
     Route: 048
  2. FENTANYL TRANSDERMAL SYSTEM [Suspect]
     Active Substance: FENTANYL
     Indication: DYSTONIA
     Dosage: UNK, ( TAKING TWO PATCHES ONE OF 75 MCG AND ONE OF 25 MCG I.E. TOTAL OF 100 MCG)
     Route: 062
  3. FENTANYL TRANSDERMAL SYSTEM [Suspect]
     Active Substance: FENTANYL
     Indication: AKATHISIA
     Dosage: UNK, ( TAKING TWO PATCHES ONE OF 75 MCG AND ONE OF 25 MCG I.E. TOTAL OF 100 MCG)
     Route: 062
  4. MORPHINE [Concomitant]
     Active Substance: MORPHINE
     Indication: PRODUCT USED FOR UNKNOWN INDICATION
     Dosage: 15 MILLIGRAM, QID
     Route: 048
  5. WELLBUTRIN [Concomitant]
     Active Substance: BUPROPION HYDROCHLORIDE
     Indication: PRODUCT USED FOR UNKNOWN INDICATION
     Dosage: 75 MILLIGRAM, BID
     Route: 048
  6. FENTANYL TRANSDERMAL SYSTEM [Suspect]
     Active Substance: FENTANYL
     Indication: AKATHISIA
     Dosage: UNK, ( TAKING TWO PATCHES ONE OF 75 MCG AND ONE OF 25 MCG I.E. TOTAL OF 100 MCG)
     Route: 062
  7. FENTANYL TRANSDERMAL SYSTEM [Suspect]
     Active Substance: FENTANYL
     Indication: DYSTONIA
     Dosage: UNK, ( TAKING TWO PATCHES ONE OF 75 MCG AND ONE OF 25 MCG I.E. TOTAL OF 100 MCG)
     Route: 062
  8. METHYLPREDNISOLONE. [Concomitant]
     Active Substance: METHYLPREDNISOLONE
     Indication: PRODUCT USED FOR UNKNOWN INDICATION
     Dosage: 4 MILLIGRAM, QD
     Route: 048
  9. ADDERALL [Concomitant]
     Active Substance: AMPHETAMINE ASPARTATE\AMPHETAMINE SULFATE\DEXTROAMPHETAMINE SACCHARATE\DEXTROAMPHETAMINE SULFATE
     Indication: PRODUCT USED FOR UNKNOWN INDICATION
     Dosage: UNK, QD
     Route: 048

REACTIONS (16)
  - Feeling cold [Unknown]
  - Insomnia [Not Recovered/Not Resolved]
  - Dizziness [Unknown]
  - Malaise [Not Recovered/Not Resolved]
  - Hallucination [Not Recovered/Not Resolved]
  - Poor quality product administered [Unknown]
  - Product storage error [Unknown]
  - Thinking abnormal [Unknown]
  - Memory impairment [Not Recovered/Not Resolved]
  - Expired product administered [Unknown]
  - Skin burning sensation [Unknown]
  - Pain [Unknown]
  - Withdrawal syndrome [Not Recovered/Not Resolved]
  - Headache [Unknown]
  - Suicidal ideation [Not Recovered/Not Resolved]
  - Drug ineffective [Unknown]

NARRATIVE: CASE EVENT DATE: 201908
